FAERS Safety Report 5532225-6 (Version None)
Quarter: 2007Q4

REPORT INFORMATION
  Report Type: 
  Country: None (occurrence: None)
  Receive Date: 20071203
  Receipt Date: 20071126
  Transmission Date: 20080405
  Serious: Yes (Hospitalization, Disabling, Other)
  Sender: FDA-Public Use
  Company Number: TR-ASTRAZENECA-2007AC02304

PATIENT
  Age: 40 Year
  Sex: Male

DRUGS (7)
  1. ATENOLOL [Suspect]
     Indication: HYPERTENSION
     Dosage: 2 X 1/2
  2. CHLORTHALIDONE [Suspect]
     Indication: HYPERTENSION
     Dosage: 2 X 1/2
  3. AMLODIPINE [Suspect]
     Indication: HYPERTENSION
     Dosage: 1 X 1
  4. CAPTOPRIL [Suspect]
     Indication: HYPERTENSION
     Route: 060
  5. CAPTOPRIL [Suspect]
     Route: 060
  6. FUROSEMIDE [Suspect]
     Indication: HYPERTENSION
     Dosage: 1 SHOT GIVEN
     Route: 042
  7. DOXAZOSIN MESYLATE [Suspect]
     Indication: HYPERTENSION

REACTIONS (1)
  - BLINDNESS [None]
